FAERS Safety Report 9919209 (Version 1)
Quarter: 2014Q1

REPORT INFORMATION
  Report Type: Spontaneous
  Country: US (occurrence: US)
  Receive Date: 20140224
  Receipt Date: 20140224
  Transmission Date: 20141002
  Serious: No
  Sender: FDA-Public Use
  Company Number: US-JNJFOC-20140210993

PATIENT
  Age: 41 Year
  Sex: Male
  Weight: 83.92 kg

DRUGS (3)
  1. INVEGA SUSTENNA [Suspect]
     Indication: SCHIZOAFFECTIVE DISORDER
     Dosage: IN BETWEEN (TRICEP AND BICEP)
     Route: 030
     Dates: start: 20131017
  2. INVEGA [Suspect]
     Indication: SCHIZOAFFECTIVE DISORDER
     Route: 048
     Dates: start: 2014
  3. INVEGA [Suspect]
     Indication: SCHIZOAFFECTIVE DISORDER
     Route: 048
     Dates: start: 2013, end: 201401

REACTIONS (3)
  - Drug administered at inappropriate site [Unknown]
  - Drug effect decreased [Not Recovered/Not Resolved]
  - Off label use [Unknown]
